FAERS Safety Report 9621641 (Version 1)
Quarter: 2013Q4

REPORT INFORMATION
  Report Type: Spontaneous
  Country: BR (occurrence: BR)
  Receive Date: 20131015
  Receipt Date: 20131015
  Transmission Date: 20140711
  Serious: Yes (Hospitalization)
  Sender: FDA-Public Use
  Company Number: BR-PFIZER INC-2013290243

PATIENT
  Age: 83 Year
  Sex: Male

DRUGS (1)
  1. XALATAN [Suspect]
     Dosage: 3 UG (1DROP IN EACH EYE), 1X/DAY
     Route: 047
     Dates: start: 20121008

REACTIONS (1)
  - Cerebrovascular accident [Unknown]
